FAERS Safety Report 15798854 (Version 2)
Quarter: 2019Q1

REPORT INFORMATION
  Report Type: Spontaneous
  Country: AU (occurrence: AU)
  Receive Date: 20190108
  Receipt Date: 20190204
  Transmission Date: 20190417
  Serious: Yes (Life-Threatening)
  Sender: FDA-Public Use
  Company Number: AU-JNJFOC-20190102234

PATIENT
  Sex: Male

DRUGS (4)
  1. LORAZEPAM. [Concomitant]
     Active Substance: LORAZEPAM
     Route: 065
  2. MIRTAZAPINE. [Concomitant]
     Active Substance: MIRTAZAPINE
     Dosage: 1 AT NIGHT
     Route: 065
  3. RISPERIDONE. [Suspect]
     Active Substance: RISPERIDONE
     Indication: PRODUCT USED FOR UNKNOWN INDICATION
     Route: 065
  4. RISPERIDONE. [Suspect]
     Active Substance: RISPERIDONE
     Indication: PRODUCT USED FOR UNKNOWN INDICATION
     Route: 065

REACTIONS (12)
  - Emotional disorder [Unknown]
  - Vision blurred [Unknown]
  - Psychotic disorder [Unknown]
  - Appetite disorder [Unknown]
  - Injury [Unknown]
  - Dystonia [Unknown]
  - Anhedonia [Unknown]
  - Tremor [Unknown]
  - Insomnia [Unknown]
  - Confusional state [Unknown]
  - Amnesia [Unknown]
  - Akathisia [Unknown]
